FAERS Safety Report 17446688 (Version 2)
Quarter: 2020Q2

REPORT INFORMATION
  Report Type: Spontaneous
  Country: FR (occurrence: FR)
  Receive Date: 20200221
  Receipt Date: 20200528
  Transmission Date: 20200713
  Serious: Yes (Other)
  Sender: FDA-Public Use
  Company Number: FR-TEVA-2020-FR-1189756

PATIENT
  Age: 53 Year
  Sex: Female

DRUGS (4)
  1. AMOXICILLINE [Suspect]
     Active Substance: AMOXICILLIN
     Indication: HELICOBACTER INFECTION
     Dosage: 2 GM
     Route: 048
     Dates: start: 20200121, end: 202002
  2. CLARITHROMYCINE [Suspect]
     Active Substance: CLARITHROMYCIN
     Indication: HELICOBACTER INFECTION
     Dosage: 1000 MG
     Route: 048
     Dates: start: 20200121, end: 202002
  3. ESOMEPRAZOLE. [Suspect]
     Active Substance: ESOMEPRAZOLE MAGNESIUM
     Indication: HELICOBACTER INFECTION
     Dosage: 40 MG
     Route: 048
     Dates: start: 20200121, end: 202002
  4. METRONIDAZOLE. [Suspect]
     Active Substance: METRONIDAZOLE
     Indication: HELICOBACTER INFECTION
     Dosage: 1000 MG
     Route: 048
     Dates: start: 20200121, end: 202002

REACTIONS (3)
  - Oral fungal infection [Recovered/Resolved]
  - Arthralgia [Recovered/Resolved]
  - Asthenia [Recovered/Resolved]

NARRATIVE: CASE EVENT DATE: 20200123
